FAERS Safety Report 17646680 (Version 1)
Quarter: 2020Q2

REPORT INFORMATION
  Report Type: Spontaneous
  Country: AT (occurrence: AT)
  Receive Date: 20200408
  Receipt Date: 20200408
  Transmission Date: 20200713
  Serious: Yes (Other)
  Sender: FDA-Public Use
  Company Number: NVSC2020AT094574

PATIENT
  Sex: Male

DRUGS (2)
  1. SEDACORON 200MG TABLETS [Suspect]
     Active Substance: AMIODARONE HYDROCHLORIDE
     Indication: PRODUCT USED FOR UNKNOWN INDICATION
     Dosage: 200 MG, QD (TAKEN 1/2 TABLET PER DAY) (DISCONTINUED)
     Route: 065
  2. SEDACORON 200MG TABLETS [Suspect]
     Active Substance: AMIODARONE HYDROCHLORIDE
     Dosage: 200 MG, QD (1 TABLET PER DAY)
     Route: 065

REACTIONS (3)
  - Coronary artery stenosis [Recovering/Resolving]
  - Wrong technique in product usage process [Unknown]
  - Pulmonary calcification [Recovering/Resolving]
